FAERS Safety Report 4689106-X (Version None)
Quarter: 2005Q2

REPORT INFORMATION
  Report Type: 
  Country: None (occurrence: None)
  Receive Date: 20050613
  Receipt Date: 20050601
  Transmission Date: 20051028
  Serious: Yes (Other)
  Sender: FDA-Public Use
  Company Number: 2005AP03203

PATIENT
  Age: 61 Year
  Sex: Female

DRUGS (4)
  1. ANAPEINE [Suspect]
     Indication: EPIDURAL ANAESTHESIA
     Route: 008
  2. ANAPEINE [Suspect]
     Route: 008
  3. FENTANYL CITRATE [Concomitant]
     Route: 008
  4. DROPERIDOL [Concomitant]
     Route: 008

REACTIONS (6)
  - BLOOD PRESSURE DECREASED [None]
  - MUSCULAR WEAKNESS [None]
  - OXYGEN SATURATION DECREASED [None]
  - SENSORY DISTURBANCE [None]
  - SPINAL CORD COMPRESSION [None]
  - SUBDURAL EFFUSION [None]
